FAERS Safety Report 8511185-X (Version None)
Quarter: 2012Q3

REPORT INFORMATION
  Report Type: 
  Country: None (occurrence: None)
  Receive Date: 20120716
  Receipt Date: 20120703
  Transmission Date: 20120928
  Serious: Yes (Death, Other)
  Sender: FDA-Public Use
  Company Number: GB-AMGEN-GBRSP2012026989

PATIENT
  Age: 68 Year
  Sex: Male
  Weight: 91.4 kg

DRUGS (3)
  1. ETANERCEPT [Suspect]
     Indication: RHEUMATOID ARTHRITIS
     Dosage: 25 MG, 2 TIMES/WK
     Dates: start: 20000815, end: 20120301
  2. METHOTREXATE [Concomitant]
     Dosage: 15 MG, WEEKLY FOR YEARS
     Route: 058
  3. PREDNISOLONE [Concomitant]
     Dosage: UNK

REACTIONS (2)
  - METASTASIS [None]
  - NON-SMALL CELL LUNG CANCER METASTATIC [None]
